FAERS Safety Report 6564585-1 (Version None)
Quarter: 2010Q1

REPORT INFORMATION
  Report Type: 
  Country: None (occurrence: None)
  Receive Date: 20100201
  Receipt Date: 20100120
  Transmission Date: 20100710
  Serious: Yes (Other)
  Sender: FDA-Public Use
  Company Number: PHHY2010JP03367

PATIENT
  Age: 14 Year
  Sex: Male

DRUGS (3)
  1. TEGRETOL [Suspect]
     Route: 048
  2. VALPROATE SODIUM [Interacting]
     Route: 048
  3. GRAPEFRUIT JUICE [Interacting]

REACTIONS (1)
  - CONVULSION [None]
